FAERS Safety Report 5566616-4 (Version None)
Quarter: 2007Q4

REPORT INFORMATION
  Report Type: 
  Country: None (occurrence: None)
  Receive Date: 20071219
  Receipt Date: 20071213
  Transmission Date: 20080405
  Serious: Yes (Other)
  Sender: FDA-Public Use
  Company Number: PHHY2007MX00930

PATIENT
  Age: 39 Year
  Sex: Female

DRUGS (1)
  1. ZELMAC [Suspect]
     Indication: IRRITABLE BOWEL SYNDROME
     Dosage: 6 MG/DAY
     Route: 048

REACTIONS (4)
  - FEELING HOT [None]
  - PAIN [None]
  - RENAL CYST [None]
  - ULTRASOUND SCAN [None]
